FAERS Safety Report 7199352-1 (Version None)
Quarter: 2010Q4

REPORT INFORMATION
  Report Type: 
  Country: None (occurrence: None)
  Receive Date: 20101228
  Receipt Date: 20101217
  Transmission Date: 20110411
  Serious: Yes (Hospitalization)
  Sender: FDA-Public Use
  Company Number: US-ABBOTT-10P-163-0692901-00

PATIENT
  Sex: Female
  Weight: 76.726 kg

DRUGS (22)
  1. HUMIRA [Suspect]
     Indication: ANKYLOSING SPONDYLITIS
     Dates: start: 20060512, end: 20060526
  2. HUMIRA [Suspect]
     Dates: start: 20061017, end: 20061223
  3. PRENATAL VITAMINS [Concomitant]
     Indication: PRODUCT USED FOR UNKNOWN INDICATION
     Dosage: 1 PILL
     Route: 048
     Dates: start: 20060606, end: 20061223
  4. MULTI-VITAMINS [Concomitant]
     Indication: PRODUCT USED FOR UNKNOWN INDICATION
     Route: 048
     Dates: start: 20060424, end: 20061223
  5. DEMEROL [Concomitant]
     Indication: ANKYLOSING SPONDYLITIS
     Route: 042
     Dates: start: 20061016, end: 20061016
  6. DEMEROL [Concomitant]
     Indication: PAIN
  7. MORPHINE [Concomitant]
     Indication: ANKYLOSING SPONDYLITIS
     Route: 042
     Dates: start: 20061016, end: 20061016
  8. PERCOCET [Concomitant]
     Indication: PRODUCT USED FOR UNKNOWN INDICATION
     Dosage: 5 TOTAL
     Route: 048
     Dates: start: 20061017, end: 20061021
  9. PERCOCET [Concomitant]
     Indication: BACK PAIN
     Dosage: 5/325
     Route: 048
     Dates: start: 20061123, end: 20061223
  10. ACETAMINOPHEN [Concomitant]
     Indication: PRODUCT USED FOR UNKNOWN INDICATION
     Route: 048
     Dates: start: 20061016, end: 20061016
  11. BENGAY ARTHRITIS [Concomitant]
     Indication: PRODUCT USED FOR UNKNOWN INDICATION
     Route: 061
     Dates: start: 20061009, end: 20061016
  12. TUMS [Concomitant]
     Indication: DYSPEPSIA
     Dosage: 15 TOTAL
     Dates: start: 20060424, end: 20060901
  13. GLYBURIDE [Concomitant]
     Indication: DIABETES MELLITUS
     Route: 048
     Dates: start: 20061114, end: 20061123
  14. GLYBURIDE [Concomitant]
     Route: 048
     Dates: start: 20061124, end: 20061223
  15. PRED FORTE [Concomitant]
     Indication: EYE DISORDER
     Route: 047
     Dates: start: 20060824, end: 20060831
  16. PREDNISONE [Concomitant]
     Indication: ANKYLOSING SPONDYLITIS
     Route: 048
     Dates: start: 20061207, end: 20061210
  17. HYDROCORTISONE [Concomitant]
     Indication: INFLAMMATORY BOWEL DISEASE
     Route: 042
     Dates: start: 20061124, end: 20061124
  18. HYDROCORTISONE [Concomitant]
     Route: 048
     Dates: start: 20061125, end: 20061129
  19. HYDROCORTISONE [Concomitant]
     Route: 048
     Dates: start: 20061130, end: 20061204
  20. HYDROCORTISONE [Concomitant]
     Route: 048
     Dates: start: 20061205, end: 20061209
  21. HYDROCORTISONE [Concomitant]
     Route: 048
     Dates: start: 20061210, end: 20061214
  22. FENUFREEK SEED EXTRACT [Concomitant]
     Indication: BREAST ATROPHY
     Dosage: PILL
     Route: 048
     Dates: start: 20060424, end: 20061223

REACTIONS (3)
  - PREMATURE LABOUR [None]
  - PYREXIA [None]
  - RESPIRATORY TRACT INFECTION [None]
